FAERS Safety Report 6461711-X (Version None)
Quarter: 2009Q4

REPORT INFORMATION
  Report Type: 
  Country: None (occurrence: None)
  Receive Date: 20091124
  Receipt Date: 20091109
  Transmission Date: 20100525
  Serious: Yes (Death, Hospitalization)
  Sender: FDA-Public Use
  Company Number: 2009AC000136

PATIENT
  Age: 93 Year
  Sex: Female

DRUGS (22)
  1. DIGOXIN [Suspect]
     Indication: ATRIAL FIBRILLATION
     Dosage: 0.125 MG;QD; PO
     Route: 048
     Dates: start: 20060801
  2. PLENDIL [Concomitant]
  3. THYROID TAB [Concomitant]
  4. BABY ASPIRIN [Concomitant]
  5. TUMS [Concomitant]
  6. PILCARPINE [Concomitant]
  7. COSOPT [Concomitant]
  8. LUMIGAN [Concomitant]
  9. MIRALAX [Concomitant]
  10. METOPROLOL [Concomitant]
  11. FUROSEMIDE [Concomitant]
  12. ALDACTONE [Concomitant]
  13. TRIAMCINOLONE ACETONIDE [Concomitant]
  14. ANUSOL HC [Concomitant]
  15. MIRALAX [Concomitant]
  16. THYROID TAB [Concomitant]
  17. TUMS [Concomitant]
  18. COSOPT [Concomitant]
  19. LUMIGAN [Concomitant]
  20. ESTRACE [Concomitant]
  21. PILOCARPINE HYDROCHLORIDE [Concomitant]
  22. PLENDIL [Concomitant]

REACTIONS (16)
  - ANAEMIA [None]
  - ANHEDONIA [None]
  - ANXIETY [None]
  - ATRIAL FIBRILLATION [None]
  - CARDIAC FAILURE CONGESTIVE [None]
  - CONDITION AGGRAVATED [None]
  - CORONARY ARTERY DISEASE [None]
  - ECONOMIC PROBLEM [None]
  - FALL [None]
  - HYPERTENSION [None]
  - INJURY [None]
  - PAIN [None]
  - PNEUMONIA [None]
  - UNEVALUABLE EVENT [None]
  - URINARY TRACT INFECTION [None]
  - UTERINE LEIOMYOMA [None]
